FAERS Safety Report 6558079-7 (Version None)
Quarter: 2010Q1

REPORT INFORMATION
  Report Type: 
  Country: None (occurrence: None)
  Receive Date: 20100129
  Receipt Date: 20100119
  Transmission Date: 20100710
  Serious: Yes (Other)
  Sender: FDA-Public Use
  Company Number: IT-PFIZER INC-2010010175

PATIENT
  Age: 63 Year
  Sex: Female

DRUGS (5)
  1. ARGATROBAN [Suspect]
     Indication: CARDIOPULMONARY BYPASS
     Dosage: 2.5 UG/KG, PER MINUTE
     Route: 042
  2. TRANEXAMIC ACID [Concomitant]
     Indication: CARDIOPULMONARY BYPASS
     Dosage: 1000 MG, DAILY
     Route: 040
  3. TRANEXAMIC ACID [Concomitant]
     Dosage: 160 MG, PER HOUR
     Route: 042
  4. PENTOTHAL [Concomitant]
     Indication: ANAESTHESIA
  5. PROPOFOL [Concomitant]
     Indication: ANAESTHESIA

REACTIONS (2)
  - DEVICE OCCLUSION [None]
  - PROCEDURAL COMPLICATION [None]
